FAERS Safety Report 10072658 (Version 1)
Quarter: 2014Q2

REPORT INFORMATION
  Report Type: Spontaneous
  Country: US (occurrence: US)
  Receive Date: 20140411
  Receipt Date: 20140411
  Transmission Date: 20141212
  Serious: No
  Sender: FDA-Public Use
  Company Number: US-PFIZER INC-2014097883

PATIENT
  Age: 92 Year
  Sex: Female

DRUGS (4)
  1. SUTENT [Suspect]
     Indication: NEOPLASM MALIGNANT
     Dosage: UNK
     Dates: start: 20140314
  2. RIVASTIGMINE TARTRATE [Concomitant]
     Dosage: UNK
  3. NAMENDA [Concomitant]
     Dosage: UNK
  4. AMLODIPINE BESYLATE [Concomitant]
     Dosage: UNK

REACTIONS (3)
  - Blood pressure fluctuation [Unknown]
  - Tachycardia [Unknown]
  - Insomnia [Unknown]
